FAERS Safety Report 6628238-3 (Version None)
Quarter: 2010Q1

REPORT INFORMATION
  Report Type: 
  Country: None (occurrence: None)
  Receive Date: 20100311
  Receipt Date: 20100218
  Transmission Date: 20100710
  Serious: Yes (Other)
  Sender: FDA-Public Use
  Company Number: PHHY2010DK09233

PATIENT
  Sex: Male

DRUGS (1)
  1. LAMISIL [Suspect]
     Indication: ONYCHOMYCOSIS
     Dosage: 250 MG, ONCE DAILY
     Route: 048
     Dates: start: 20000712, end: 20001017

REACTIONS (7)
  - BLISTER [None]
  - ECZEMA INFECTED [None]
  - ECZEMA NUMMULAR [None]
  - EXCORIATION [None]
  - MALAISE [None]
  - PRURITUS [None]
  - STAPHYLOCOCCAL INFECTION [None]
